FAERS Safety Report 24101315 (Version 1)
Quarter: 2024Q3

REPORT INFORMATION
  Report Type: Report from Study
  Country: ZA (occurrence: None)
  Receive Date: 20240717
  Receipt Date: 20240717
  Transmission Date: 20241016
  Serious: Yes (Other)
  Sender: ASTRAZENECA
  Company Number: 2019SF56079

PATIENT
  Age: 20916 Day
  Sex: Male

DRUGS (5)
  1. ROSUVASTATIN [Suspect]
     Active Substance: ROSUVASTATIN
     Indication: Blood cholesterol
     Dosage: 10.0MG UNKNOWN
     Route: 048
  2. POTASSIUM CHLORIDE [Concomitant]
     Active Substance: POTASSIUM CHLORIDE
     Indication: Blood potassium
     Dosage: 600.0MG UNKNOWN
     Route: 048
  3. BEZAFIBRATE [Concomitant]
     Active Substance: BEZAFIBRATE
     Indication: Blood cholesterol
     Dosage: 400.0MG UNKNOWN
     Route: 048
  4. OMEPRAZOLE [Concomitant]
     Active Substance: OMEPRAZOLE
     Indication: Ulcer
     Dosage: 20.0MG UNKNOWN
     Route: 048
  5. HYDROCHLOROTHIAZIDE\VALSARTAN [Concomitant]
     Active Substance: HYDROCHLOROTHIAZIDE\VALSARTAN
     Indication: Hypertension
     Dosage: 160/12.5 MG
     Route: 048

REACTIONS (1)
  - Prostate cancer [Unknown]

NARRATIVE: CASE EVENT DATE: 20190625
